FAERS Safety Report 5263530-9 (Version None)
Quarter: 2007Q1

REPORT INFORMATION
  Report Type: 
  Country: None (occurrence: None)
  Receive Date: 20070313
  Receipt Date: 20070309
  Transmission Date: 20070707
  Serious: Yes (Other)
  Sender: FDA-Public Use
  Company Number: FR-BRISTOL-MYERS SQUIBB COMPANY-13684824

PATIENT
  Age: 49 Year
  Sex: Male
  Weight: 70 kg

DRUGS (6)
  1. REYATAZ [Suspect]
     Indication: HIV INFECTION
     Route: 048
     Dates: start: 20040101
  2. COPEGUS [Suspect]
     Indication: HEPATITIS C
     Dates: start: 20061228, end: 20070105
  3. PEGASYS [Concomitant]
     Indication: HEPATITIS C
     Route: 058
     Dates: start: 20061228, end: 20070104
  4. SUBUTEX [Concomitant]
     Indication: ELECTROLYTE SUBSTITUTION THERAPY
     Route: 048
     Dates: start: 20000101
  5. COMBIVIR [Concomitant]
     Route: 048
     Dates: start: 20000101
  6. NORVIR [Concomitant]
     Indication: HIV INFECTION
     Route: 048
     Dates: start: 20040101

REACTIONS (3)
  - HAEMOLYSIS [None]
  - HYPERBILIRUBINAEMIA [None]
  - JAUNDICE [None]
